FAERS Safety Report 24373623 (Version 1)
Quarter: 2024Q3

REPORT INFORMATION
  Report Type: Spontaneous
  Country: US (occurrence: US)
  Receive Date: 20240927
  Receipt Date: 20240927
  Transmission Date: 20241016
  Serious: No
  Sender: VIVUS
  Company Number: US-VIVUS LLC-2023V1001222

PATIENT
  Sex: Female

DRUGS (3)
  1. QSYMIA [Suspect]
     Active Substance: PHENTERMINE HYDROCHLORIDE\TOPIRAMATE
     Indication: Product used for unknown indication
     Route: 048
  2. TYLONEL W/ CODEINE [Concomitant]
     Indication: Intervertebral disc protrusion
  3. PERCOCET [Concomitant]
     Active Substance: ACETAMINOPHEN\OXYCODONE HYDROCHLORIDE
     Indication: Product used for unknown indication

REACTIONS (7)
  - Upper respiratory tract infection [Not Recovered/Not Resolved]
  - Endometriosis [Recovered/Resolved]
  - Anaemia [Recovered/Resolved]
  - Endometrial neoplasm [Recovered/Resolved]
  - Iron deficiency [Recovered/Resolved]
  - Vaginal haemorrhage [Recovered/Resolved]
  - Intervertebral disc protrusion [Not Recovered/Not Resolved]
